FAERS Safety Report 9474659 (Version 1)
Quarter: 2013Q3

REPORT INFORMATION
  Report Type: Spontaneous
  Country: FR (occurrence: FR)
  Receive Date: 20130823
  Receipt Date: 20130823
  Transmission Date: 20140515
  Serious: Yes (Life-Threatening)
  Sender: FDA-Public Use
  Company Number: FR-B.I. PHARMACEUTICALS,INC./RIDGEFIELD-2013-FF-02112FF

PATIENT
  Age: 89 Year
  Sex: Male

DRUGS (12)
  1. MECIR [Suspect]
     Dosage: 0.4 MG
     Route: 048
  2. LEPONEX [Suspect]
     Indication: HALLUCINATION, VISUAL
     Dosage: 12.5 MG
     Route: 048
     Dates: start: 20130606, end: 20130626
  3. EXELON [Suspect]
     Dosage: 4.6MG/24H
     Route: 062
     Dates: start: 20130531
  4. SINEMET [Suspect]
     Dosage: 100MG/10MG
     Route: 048
  5. BISOCE [Suspect]
     Route: 048
  6. MOVICOL [Concomitant]
     Route: 048
  7. INEXIUM [Concomitant]
     Dosage: 40 MG
     Route: 048
  8. KARDEGIC [Concomitant]
     Route: 048
  9. PRAVASTATINE SODIQUE [Concomitant]
     Route: 048
  10. ADANCOR [Concomitant]
     Route: 048
  11. DAFALGAN [Concomitant]
     Dosage: 500 MG
     Route: 048
  12. SERESTA [Concomitant]
     Dosage: 5 MG
     Route: 048

REACTIONS (3)
  - Syncope [Recovered/Resolved]
  - Ventricular extrasystoles [Recovered/Resolved]
  - Tachycardia [Recovered/Resolved]
